FAERS Safety Report 19101666 (Version 1)
Quarter: 2021Q2

REPORT INFORMATION
  Report Type: Spontaneous
  Country: IT (occurrence: IT)
  Receive Date: 20210407
  Receipt Date: 20210407
  Transmission Date: 20210717
  Serious: Yes (Hospitalization, Other)
  Sender: FDA-Public Use
  Company Number: IT-AKCEA THERAPEUTICS, INC.-2021IS001211

PATIENT
  Age: 78 Year
  Sex: Male

DRUGS (10)
  1. ISSD (INTEGRATED SYRINGE SAFETY DEVICE) [Suspect]
     Active Substance: DEVICE
  2. XANAX [Concomitant]
     Active Substance: ALPRAZOLAM
     Route: 065
  3. UROREC [Concomitant]
     Active Substance: SILODOSIN
     Route: 065
  4. PALEXIA [Concomitant]
     Active Substance: TAPENTADOL HYDROCHLORIDE
     Route: 065
  5. SOLGAR VIT A [Concomitant]
     Route: 065
  6. RANITIDINE. [Concomitant]
     Active Substance: RANITIDINE
     Route: 065
  7. CARDICOR [Concomitant]
     Active Substance: BISOPROLOL
     Route: 065
  8. APROVEL [Concomitant]
     Active Substance: IRBESARTAN
     Route: 065
  9. TEGSEDI [Suspect]
     Active Substance: INOTERSEN SODIUM
     Indication: HEREDITARY NEUROPATHIC AMYLOIDOSIS
     Route: 058
     Dates: start: 20190612
  10. REXTAT [Concomitant]
     Active Substance: LOVASTATIN
     Route: 065

REACTIONS (1)
  - Haemorrhage [Not Recovered/Not Resolved]

NARRATIVE: CASE EVENT DATE: 20210326
